FAERS Safety Report 24533954 (Version 1)
Quarter: 2024Q4

REPORT INFORMATION
  Report Type: Spontaneous
  Country: US (occurrence: None)
  Receive Date: 20241021
  Receipt Date: 20241021
  Transmission Date: 20250115
  Serious: Yes (Hospitalization)
  Sender: Public
  Company Number: None

PATIENT
  Age: 56 Year
  Sex: Male
  Weight: 92.25 kg

DRUGS (2)
  1. MOUNJARO [Suspect]
     Active Substance: TIRZEPATIDE
     Dosage: OTHER QUANTITY : 1 INJECTION(S);?OTHER FREQUENCY : 1 INJECTION PER WE;?
     Route: 061
     Dates: start: 20240929, end: 20241006
  2. METFORMIN [Concomitant]
     Active Substance: METFORMIN HYDROCHLORIDE

REACTIONS (6)
  - Feeling abnormal [None]
  - Eating disorder [None]
  - Hypophagia [None]
  - Impaired gastric emptying [None]
  - Fear [None]
  - Dyspnoea [None]

NARRATIVE: CASE EVENT DATE: 20241010
